FAERS Safety Report 14041281 (Version 1)
Quarter: 2017Q4

REPORT INFORMATION
  Report Type: Report from Study
  Country: US (occurrence: US)
  Receive Date: 20171004
  Receipt Date: 20171004
  Transmission Date: 20180321
  Serious: No
  Sender: FDA-Public Use
  Company Number: US-AMGEN-USASL2017007124

PATIENT
  Age: 56 Year
  Sex: Female

DRUGS (1)
  1. PROLIA [Suspect]
     Active Substance: DENOSUMAB
     Indication: OSTEOPOROSIS POSTMENOPAUSAL
     Dosage: 60 MG, Q6MO
     Route: 058

REACTIONS (10)
  - Gingival swelling [Unknown]
  - Oral infection [Unknown]
  - Malaise [Recovered/Resolved]
  - Hypophagia [Recovered/Resolved]
  - Gingival pain [Unknown]
  - Upper-airway cough syndrome [Unknown]
  - Diarrhoea [Recovered/Resolved]
  - Asthenia [Recovered/Resolved]
  - Unevaluable event [Unknown]
  - Nasopharyngitis [Unknown]
